FAERS Safety Report 9163566 (Version 1)
Quarter: 2013Q1

REPORT INFORMATION
  Report Type: Spontaneous
  Country: IT (occurrence: IT)
  Receive Date: 20130314
  Receipt Date: 20130314
  Transmission Date: 20140127
  Serious: Yes (Hospitalization)
  Sender: FDA-Public Use
  Company Number: IT-TEVA-390695ISR

PATIENT
  Age: 68 Year
  Sex: Male

DRUGS (4)
  1. ZOLPIDEM [Suspect]
     Indication: INSOMNIA
     Dosage: 10 GTT DAILY;
     Route: 048
     Dates: start: 20120824, end: 20120824
  2. BLOPRESID [Concomitant]
  3. VASEXTEN [Concomitant]
  4. ACIDO ACETILSALICILICO [Concomitant]

REACTIONS (1)
  - Cerebral ischaemia [Not Recovered/Not Resolved]
